FAERS Safety Report 17569170 (Version 1)
Quarter: 2020Q1

REPORT INFORMATION
  Report Type: Spontaneous
  Country: US (occurrence: US)
  Receive Date: 20200322
  Receipt Date: 20200322
  Transmission Date: 20200409
  Serious: Yes (Other)
  Sender: FDA-Public Use
  Company Number: NVSC2020US080500

PATIENT
  Sex: Female

DRUGS (1)
  1. XIIDRA [Suspect]
     Active Substance: LIFITEGRAST
     Indication: PRODUCT USED FOR UNKNOWN INDICATION
     Dosage: 1 DRP, BID
     Route: 047
     Dates: start: 20170420

REACTIONS (5)
  - Cystoid macular oedema [Unknown]
  - Speech disorder [Unknown]
  - Blindness [Unknown]
  - Uveitis [Unknown]
  - Orthostatic hypotension [Unknown]
